FAERS Safety Report 11591042 (Version 1)
Quarter: 2015Q4

REPORT INFORMATION
  Report Type: Spontaneous
  Country: GB (occurrence: GB)
  Receive Date: 20151003
  Receipt Date: 20151003
  Transmission Date: 20160304
  Serious: Yes (Other)
  Sender: FDA-Public Use
  Company Number: GB-ACCORD-033990

PATIENT
  Age: 31 Year
  Sex: Female
  Weight: 66 kg

DRUGS (4)
  1. NITROFURANTOIN/NITROFURANTOIN SODIUM [Concomitant]
  2. MEROPENEM. [Suspect]
     Active Substance: MEROPENEM
     Indication: PYELONEPHRITIS
     Route: 042
     Dates: start: 20150902, end: 20150904
  3. PIPERACILLIN SODIUM/TAZOBACTAM SODIUM [Suspect]
     Active Substance: PIPERACILLIN SODIUM\TAZOBACTAM SODIUM
     Indication: PYELONEPHRITIS
     Dosage: PATIENT RECEIVED 1 DF OF PIPERACILLIN/TAZOBACTAM FROM 31-AUG-2015 PREVIOUSLY.
     Route: 042
     Dates: start: 20150901, end: 20150902
  4. TRAMADOL/TRAMADOL HYDROCHLORIDE [Suspect]
     Active Substance: TRAMADOL HYDROCHLORIDE
     Indication: PRODUCT USED FOR UNKNOWN INDICATION

REACTIONS (5)
  - Stevens-Johnson syndrome [Not Recovered/Not Resolved]
  - Rash maculo-papular [Not Recovered/Not Resolved]
  - Eye swelling [Not Recovered/Not Resolved]
  - Mouth ulceration [Recovered/Resolved]
  - Pancytopenia [Not Recovered/Not Resolved]

NARRATIVE: CASE EVENT DATE: 20150904
